FAERS Safety Report 11325803 (Version 1)
Quarter: 2015Q3

REPORT INFORMATION
  Report Type: Other
  Country: IT (occurrence: IT)
  Receive Date: 20150731
  Receipt Date: 20150731
  Transmission Date: 20151125
  Serious: Yes (Life-Threatening)
  Sender: FDA-Public Use
  Company Number: IT-SUN PHARMACEUTICAL INDUSTRIES LTD-2015SUN01699

PATIENT

DRUGS (1)
  1. OXALIPLATINO SUN 5 MG/ML, CONCENTRATO PER SOLUZIONE PER INFUSIONE [Suspect]
     Active Substance: OXALIPLATIN
     Indication: GALLBLADDER CANCER
     Dosage: 140 MG TOTAL
     Route: 042
     Dates: start: 20150715, end: 20150715

REACTIONS (6)
  - Loss of consciousness [Recovered/Resolved]
  - Bradycardia [Recovered/Resolved]
  - Vomiting [Recovered/Resolved]
  - Anaphylactic reaction [Recovered/Resolved]
  - Hyperhidrosis [Recovered/Resolved]
  - Trismus [Recovered/Resolved]

NARRATIVE: CASE EVENT DATE: 20150715
